FAERS Safety Report 7413583-4 (Version None)
Quarter: 2011Q2

REPORT INFORMATION
  Report Type: 
  Country: None (occurrence: None)
  Receive Date: 20110413
  Receipt Date: 20110331
  Transmission Date: 20111010
  Serious: Yes (Other)
  Sender: FDA-Public Use
  Company Number: CN-GENENTECH-315238

PATIENT
  Age: 63 Year
  Sex: Female

DRUGS (1)
  1. MABTHERA [Suspect]
     Indication: DIFFUSE LARGE B-CELL LYMPHOMA
     Dosage: 600 MG, Q21D
     Route: 065

REACTIONS (2)
  - DEMYELINATION [None]
  - LYMPHOMA [None]
